FAERS Safety Report 16322709 (Version 3)
Quarter: 2019Q3

REPORT INFORMATION
  Report Type: Report from Study
  Country: BR (occurrence: BR)
  Receive Date: 20190516
  Receipt Date: 20190926
  Transmission Date: 20191004
  Serious: Yes (Other)
  Sender: FDA-Public Use
  Company Number: PHHY2018BR081942

PATIENT
  Age: 22 Year
  Sex: Female
  Weight: 64 kg

DRUGS (3)
  1. COSENTYX [Suspect]
     Active Substance: SECUKINUMAB
     Indication: ANKYLOSING SPONDYLITIS
     Dosage: 150 MG, QW
     Route: 058
     Dates: start: 20180806
  2. COSENTYX [Suspect]
     Active Substance: SECUKINUMAB
     Dosage: UNK
     Route: 065
     Dates: start: 20190820
  3. COSENTYX [Suspect]
     Active Substance: SECUKINUMAB
     Dosage: 150 MG, QMO
     Route: 058

REACTIONS (15)
  - Pharyngitis bacterial [Not Recovered/Not Resolved]
  - Ear congestion [Unknown]
  - Dysuria [Not Recovered/Not Resolved]
  - Urinary tract infection [Recovering/Resolving]
  - Decreased immune responsiveness [Unknown]
  - Tonsillitis [Recovered/Resolved]
  - Sinusitis [Recovered/Resolved]
  - Pain [Not Recovered/Not Resolved]
  - Urinary tract infection bacterial [Recovered/Resolved]
  - Concomitant disease aggravated [Recovering/Resolving]
  - Injection site erythema [Recovered/Resolved]
  - Injection site macule [Recovered/Resolved]
  - Oropharyngeal pain [Unknown]
  - Hypersensitivity [Recovered/Resolved]
  - Infection [Recovered/Resolved]

NARRATIVE: CASE EVENT DATE: 20180819
